FAERS Safety Report 25370242 (Version 1)
Quarter: 2025Q2

REPORT INFORMATION
  Report Type: Spontaneous
  Country: US (occurrence: US)
  Receive Date: 20250528
  Receipt Date: 20250528
  Transmission Date: 20250717
  Serious: No
  Sender: SANOFI AVENTIS
  Company Number: US-SA-2025SA150320

PATIENT
  Age: 27 Year
  Sex: Female
  Weight: 80.73 kg

DRUGS (4)
  1. DUPIXENT [Suspect]
     Active Substance: DUPILUMAB
     Indication: Nasal polyps
     Dosage: 300MG; QOW
     Route: 058
     Dates: start: 20250404, end: 202505
  2. IBUPROFEN [Concomitant]
     Active Substance: IBUPROFEN
  3. ALBUTEROL SULFATE [Concomitant]
     Active Substance: ALBUTEROL SULFATE
  4. EPIPEN [Concomitant]
     Active Substance: EPINEPHRINE

REACTIONS (2)
  - Injection site erythema [Recovered/Resolved]
  - Peripheral swelling [Recovered/Resolved]

NARRATIVE: CASE EVENT DATE: 20250502
